FAERS Safety Report 6491865-0 (Version None)
Quarter: 2009Q4

REPORT INFORMATION
  Report Type: 
  Country: None (occurrence: None)
  Receive Date: 20091125
  Receipt Date: 20090731
  Transmission Date: 20100525
  Serious: Yes (Hospitalization)
  Sender: FDA-Public Use
  Company Number: 2009BH012307

PATIENT
  Age: 25 Year
  Sex: Female

DRUGS (11)
  1. DIANEAL [Suspect]
     Indication: PERITONEAL DIALYSIS
     Dosage: 12 L; EVERY DAY; IP
     Route: 033
     Dates: start: 20070101, end: 20090619
  2. ZEMPLAR [Concomitant]
  3. SENSIPAR [Concomitant]
  4. LASIX [Concomitant]
  5. PEPCID [Concomitant]
  6. LOPRESSOR [Concomitant]
  7. NEPHROCAPS [Concomitant]
  8. XANAX [Concomitant]
  9. CLONIDINE [Concomitant]
  10. LANTUS [Concomitant]
  11. PHOSLO [Concomitant]

REACTIONS (1)
  - ABDOMINAL PAIN [None]
